FAERS Safety Report 10476159 (Version 1)
Quarter: 2014Q3

REPORT INFORMATION
  Report Type: Spontaneous
  Country: US (occurrence: US)
  Receive Date: 20140925
  Receipt Date: 20140925
  Transmission Date: 20150326
  Serious: No
  Sender: FDA-Public Use
  Company Number: US-009507513-1409USA007456

PATIENT
  Age: 79 Year
  Sex: Male
  Weight: 108.84 kg

DRUGS (2)
  1. DECADRON [Suspect]
     Active Substance: DEXAMETHASONE
     Indication: PLASMA CELL MYELOMA
     Dosage: 20 MG, QD (DAY 1,2,4,5,8,9,11,12 OF EACH 21 DAY CYCLE)
     Route: 048
     Dates: start: 20140522
  2. VELCADE [Suspect]
     Active Substance: BORTEZOMIB
     Indication: PLASMA CELL MYELOMA
     Dosage: 1.3 MG/M2 (EVERY 4 DAYS X 4 OF A 21 DAY CYCLE)
     Route: 058
     Dates: start: 20140522

REACTIONS (1)
  - Herpes simplex [Recovered/Resolved]

NARRATIVE: CASE EVENT DATE: 20140710
